FAERS Safety Report 5573114-0 (Version None)
Quarter: 2007Q4

REPORT INFORMATION
  Report Type: 
  Country: None (occurrence: None)
  Receive Date: 20071220
  Receipt Date: 20071220
  Transmission Date: 20080405
  Serious: Yes (Hospitalization)
  Sender: FDA-Public Use
  Company Number: None

PATIENT
  Age: 53 Year
  Sex: Male

DRUGS (2)
  1. PEGINTERFERON [Suspect]
     Indication: HEPATITIS C
     Dosage: 180MCG  QWEEK  SQ
     Route: 058
     Dates: start: 20070119, end: 20071207
  2. RIBAVIRIN [Suspect]
     Dosage: 600MG  BID  PO
     Route: 048
     Dates: start: 20070119, end: 20071207

REACTIONS (1)
  - NEPHRITIS [None]
